FAERS Safety Report 4487577-5 (Version None)
Quarter: 2004Q4

REPORT INFORMATION
  Report Type: 
  Country: None (occurrence: None)
  Receive Date: 20041027
  Receipt Date: 20041027
  Transmission Date: 20050328
  Serious: Yes (Hospitalization)
  Sender: FDA-Public Use
  Company Number: None

PATIENT
  Sex: Male
  Weight: 91.6 kg

DRUGS (6)
  1. RITUXIMAB [Suspect]
     Indication: CHRONIC LYMPHOCYTIC LEUKAEMIA
     Dosage: 1100MG   DAY 1, 14   INTRAVENOU
     Route: 042
     Dates: start: 20040629, end: 20041019
  2. FLUDARABINE [Suspect]
     Dosage: DAYS 1,2,3   INTRAVENOU
     Route: 042
     Dates: start: 20040629, end: 20041021
  3. CYTOXAN [Suspect]
  4. ACYCLOVIR [Concomitant]
  5. LIPITOR [Concomitant]
  6. CLARINEX [Concomitant]

REACTIONS (4)
  - BODY TEMPERATURE INCREASED [None]
  - CHILLS [None]
  - DRUG HYPERSENSITIVITY [None]
  - THERAPY NON-RESPONDER [None]
